FAERS Safety Report 4822354-4 (Version None)
Quarter: 2005Q4

REPORT INFORMATION
  Report Type: 
  Country: None (occurrence: None)
  Receive Date: 20051104
  Receipt Date: 20051024
  Transmission Date: 20060501
  Serious: Yes (Death)
  Sender: FDA-Public Use
  Company Number: B0398305A

PATIENT
  Age: 57 Year
  Sex: Female

DRUGS (2)
  1. CEPHALEXIN [Suspect]
     Dosage: 1 GRAM (S)/ INTRAVENOUS
     Route: 042
  2. CEFAZOLIN [Suspect]
     Indication: PYELONEPHRITIS
     Dosage: 1 GRAM (S)/INTRAVENOUS
     Route: 042

REACTIONS (10)
  - ANAPHYLACTIC REACTION [None]
  - CHEST PAIN [None]
  - CYANOSIS [None]
  - DRUG HYPERSENSITIVITY [None]
  - GAZE PALSY [None]
  - HEART RATE DECREASED [None]
  - MUSCLE TWITCHING [None]
  - MYDRIASIS [None]
  - NAUSEA [None]
  - URINARY INCONTINENCE [None]
